FAERS Safety Report 5111646-X (Version None)
Quarter: 2006Q3

REPORT INFORMATION
  Report Type: 
  Country: None (occurrence: None)
  Receive Date: 20060920
  Receipt Date: 20060920
  Transmission Date: 20061208
  Serious: Yes (Hospitalization)
  Sender: FDA-Public Use
  Company Number: None

PATIENT
  Age: 51 Year
  Sex: Female
  Weight: 63.5036 kg

DRUGS (2)
  1. KETEK [Suspect]
     Indication: EAR INFECTION
     Dosage: 800 MG Q DAY PO
     Route: 048
     Dates: start: 20060828, end: 20060903
  2. TYLENOL [Suspect]
     Indication: PYREXIA
     Dosage: }500 MG Q 4 HR PO
     Route: 048
     Dates: start: 20060828, end: 20060905

REACTIONS (12)
  - ABDOMINAL DISTENSION [None]
  - ABDOMINAL PAIN [None]
  - ARTHRITIS [None]
  - CHROMATURIA [None]
  - DRUG INEFFECTIVE [None]
  - FREQUENT BOWEL MOVEMENTS [None]
  - INFECTION [None]
  - JAUNDICE [None]
  - NAUSEA [None]
  - PAIN IN EXTREMITY [None]
  - PYREXIA [None]
  - VOMITING [None]
